FAERS Safety Report 5235733-0 (Version None)
Quarter: 2007Q1

REPORT INFORMATION
  Report Type: 
  Country: None (occurrence: None)
  Receive Date: 20061208
  Receipt Date: 20051128
  Transmission Date: 20070707
  Serious: Yes (Other)
  Sender: FDA-Public Use
  Company Number: 2005UW17905

PATIENT
  Age: 47 Year
  Sex: Male
  Weight: 97.522 kg

DRUGS (2)
  1. CRESTOR [Suspect]
     Indication: HYPERCHOLESTEROLAEMIA
     Dosage: 10 MG QD PO
     Route: 048
     Dates: start: 20040101
  2. SYNTHROID [Concomitant]

REACTIONS (2)
  - ARTHRALGIA [None]
  - BREATH ODOUR [None]
